FAERS Safety Report 8272737-8 (Version None)
Quarter: 2012Q2

REPORT INFORMATION
  Report Type: 
  Country: None (occurrence: None)
  Receive Date: 20120411
  Receipt Date: 20120324
  Transmission Date: 20120825
  Serious: Yes (Hospitalization)
  Sender: FDA-Public Use
  Company Number: JP-BAXTER-2012BAX000651

PATIENT
  Sex: Female

DRUGS (1)
  1. DIANEAL 137 W/ DEXTROSE 2.5% IN PLASTIC CONTAINER [Suspect]
     Indication: DIABETIC NEPHROPATHY
     Route: 033

REACTIONS (1)
  - ANAEMIA [None]
